FAERS Safety Report 9669776 (Version 2)
Quarter: 2013Q4

REPORT INFORMATION
  Report Type: Spontaneous
  Country: US (occurrence: US)
  Receive Date: 20131105
  Receipt Date: 20131105
  Transmission Date: 20140711
  Serious: Yes (Other)
  Sender: FDA-Public Use
  Company Number: US-UCBSA-094784

PATIENT
  Sex: Female
  Weight: 58.96 kg

DRUGS (22)
  1. KEPPRA [Suspect]
  2. XYREM [Suspect]
     Indication: CATAPLEXY
     Dosage: NIGHTLY (DOSE STRENGTH:500 MG/ML)
     Route: 048
     Dates: start: 201208, end: 2012
  3. XYREM [Suspect]
     Indication: NARCOLEPSY
     Dosage: NIGHTLY (DOSE STRENGTH:500 MG/ML)
     Route: 048
     Dates: start: 201208, end: 2012
  4. XYREM [Suspect]
     Indication: CATAPLEXY
     Dosage: NIGHTLY (DOSE STRENGTH:500 MG/ML)
     Route: 048
     Dates: start: 2012, end: 20121107
  5. XYREM [Suspect]
     Indication: NARCOLEPSY
     Dosage: NIGHTLY (DOSE STRENGTH:500 MG/ML)
     Route: 048
     Dates: start: 2012, end: 20121107
  6. XYREM [Suspect]
     Indication: CATAPLEXY
     Dosage: NIGHTLY (DOSE STRENGTH:500 MG/ML)
     Route: 048
     Dates: start: 20121108, end: 201211
  7. XYREM [Suspect]
     Indication: NARCOLEPSY
     Dosage: NIGHTLY (DOSE STRENGTH:500 MG/ML)
     Route: 048
     Dates: start: 20121108, end: 201211
  8. XYREM [Suspect]
     Indication: CATAPLEXY
     Dosage: NIGHTLY (DOSE STRENGTH:500 MG/ML)
     Route: 048
     Dates: start: 201211
  9. XYREM [Suspect]
     Indication: NARCOLEPSY
     Dosage: NIGHTLY (DOSE STRENGTH:500 MG/ML)
     Route: 048
     Dates: start: 201211
  10. XYREM [Suspect]
     Indication: CATAPLEXY
     Dosage: NIGHTLY (DOSE STRENGTH:500 MG/ML)
     Route: 048
     Dates: start: 201310
  11. XYREM [Suspect]
     Indication: NARCOLEPSY
     Dosage: NIGHTLY (DOSE STRENGTH:500 MG/ML)
     Route: 048
     Dates: start: 201310
  12. IBUPROFEN [Concomitant]
     Dosage: UNKNOWN
  13. VALACICLOVIR HYDROCHLORIDE [Concomitant]
     Dosage: UNKNOWN
  14. LAMOTRIGINE [Concomitant]
     Dosage: UNKNOWN
  15. NAPROXEN SODIUM [Concomitant]
     Dosage: UNKNOWN
  16. ALBUTEROL [Concomitant]
     Dosage: UNKNOWN
  17. FAMOTIDINE [Concomitant]
     Dosage: UNKNOWN
  18. LORATADINE [Concomitant]
     Dosage: UNKNOWN
  19. HYDROCORTISONE [Concomitant]
     Dosage: UNKNOWN
  20. CITALOPRAM [Concomitant]
     Dosage: UNKNOWN
  21. ZOVIRAX [Concomitant]
     Dosage: UNKNOWN
  22. TRIAMCINOLONE [Concomitant]
     Dosage: UNKNOWN

REACTIONS (3)
  - Convulsion [Recovered/Resolved]
  - Performance status decreased [Recovered/Resolved]
  - Somnolence [Recovered/Resolved]
